FAERS Safety Report 6107905-4 (Version None)
Quarter: 2009Q1

REPORT INFORMATION
  Report Type: 
  Country: None (occurrence: None)
  Receive Date: 20090309
  Receipt Date: 20090226
  Transmission Date: 20090719
  Serious: Yes (Hospitalization)
  Sender: FDA-Public Use
  Company Number: IT-MERCK-0902ITA00006

PATIENT
  Age: 62 Year
  Sex: Female

DRUGS (1)
  1. FOSAMAX [Suspect]
     Indication: OSTEOPOROSIS
     Route: 048
     Dates: start: 20081001

REACTIONS (4)
  - BRADYCARDIA [None]
  - FACIAL SPASM [None]
  - HYPOCALCAEMIA [None]
  - PARAESTHESIA [None]
